FAERS Safety Report 6471004-2 (Version None)
Quarter: 2009Q4

REPORT INFORMATION
  Report Type: 
  Country: None (occurrence: None)
  Receive Date: 20091203
  Receipt Date: 20080107
  Transmission Date: 20100525
  Serious: Yes (Hospitalization)
  Sender: FDA-Public Use
  Company Number: FR-ELI_LILLY_AND_COMPANY-FR200801000820

PATIENT
  Sex: Female

DRUGS (3)
  1. FORTEO [Suspect]
     Indication: OSTEOPOROSIS
     Route: 058
     Dates: start: 20060408, end: 20071030
  2. MODOPAR [Concomitant]
     Indication: PARKINSON'S DISEASE
  3. ARICEPT [Concomitant]
     Indication: PARKINSON'S DISEASE

REACTIONS (3)
  - CALCULUS URINARY [None]
  - PYELONEPHRITIS [None]
  - RENAL ABSCESS [None]
